FAERS Safety Report 10728823 (Version 1)
Quarter: 2015Q1

REPORT INFORMATION
  Report Type: Spontaneous
  Country: US (occurrence: None)
  Receive Date: 20150120
  Receipt Date: 20150120
  Transmission Date: 20150721
  Serious: Yes (Hospitalization, Disabling)
  Sender: FDA-Public Use
  Company Number: None

PATIENT
  Age: 36 Year
  Sex: Male
  Weight: 122.47 kg

DRUGS (2)
  1. KENALOG [Suspect]
     Active Substance: TRIAMCINOLONE ACETONIDE
     Indication: INFLAMMATION
     Dosage: 1 SHOT -- INTO THE MUSCLE
     Route: 030
     Dates: start: 20140501
  2. BACTRIM [Suspect]
     Active Substance: SULFAMETHOXAZOLE\TRIMETHOPRIM
     Indication: INFECTION
     Dosage: 2 PILLS A DAY I THINK TWICE DAILY TAKEN BY MOUTH
     Route: 048
     Dates: start: 20140501, end: 20140531

REACTIONS (6)
  - Tendon injury [None]
  - Dysstasia [None]
  - Muscle injury [None]
  - Back injury [None]
  - Back pain [None]
  - Limb injury [None]

NARRATIVE: CASE EVENT DATE: 20140501
